FAERS Safety Report 4815885-4 (Version None)
Quarter: 2005Q4

REPORT INFORMATION
  Report Type: 
  Country: None (occurrence: None)
  Receive Date: 20051031
  Receipt Date: 20051021
  Transmission Date: 20060501
  Serious: Yes (Other)
  Sender: FDA-Public Use
  Company Number: US-JNJFOC-20051005456

PATIENT
  Sex: Female

DRUGS (1)
  1. GRIFULVIN V [Suspect]
     Indication: FUNGAL INFECTION
     Route: 048

REACTIONS (1)
  - STEVENS-JOHNSON SYNDROME [None]
